FAERS Safety Report 4751760-1 (Version None)
Quarter: 2005Q3

REPORT INFORMATION
  Report Type: 
  Country: None (occurrence: None)
  Receive Date: 20050822
  Receipt Date: 20050810
  Transmission Date: 20060218
  Serious: Yes (Other)
  Sender: FDA-Public Use
  Company Number: 2004076847

PATIENT
  Age: 53 Year
  Sex: Female

DRUGS (3)
  1. ZOLOFT [Suspect]
     Indication: DEPRESSION
     Dosage: 50 MG (50 MG, 1 IN 1 D), ORAL
     Route: 048
     Dates: start: 20030101
  2. NEURONTIN [Suspect]
     Indication: POST-TRAUMATIC EPILEPSY
     Dosage: 1800 MG (DAILY), ORAL
     Route: 048
     Dates: start: 20030101
  3. DANTRIUM (CANTROLENE SODIUM) [Concomitant]

REACTIONS (1)
  - CONVULSION [None]
